FAERS Safety Report 10072387 (Version 2)
Quarter: 2014Q2

REPORT INFORMATION
  Report Type: Spontaneous
  Country: US (occurrence: None)
  Receive Date: 20140409
  Receipt Date: 20140416
  Transmission Date: 20141212
  Serious: Yes (Hospitalization)
  Sender: FDA-Public Use
  Company Number: HT-2014-807-0001

PATIENT
  Age: 85 Year
  Sex: Male
  Weight: 61.24 kg

DRUGS (4)
  1. AMANTADINE HYDROCHLORIDE [Suspect]
     Indication: PARKINSON^S DISEASE
  2. SINEMET [Concomitant]
  3. NORVASC [Concomitant]
  4. METOPROLOL [Concomitant]

REACTIONS (3)
  - Haemorrhage intracranial [None]
  - Craniocerebral injury [None]
  - Convulsion [None]
